FAERS Safety Report 7586035-9 (Version None)
Quarter: 2011Q2

REPORT INFORMATION
  Report Type: 
  Country: None (occurrence: None)
  Receive Date: 20110629
  Receipt Date: 20110629
  Transmission Date: 20111010
  Serious: No
  Sender: FDA-Public Use
  Company Number: None

PATIENT
  Sex: Female

DRUGS (1)
  1. SIMVASTATIN [Suspect]
     Indication: BLOOD CHOLESTEROL
     Dosage: TAKE 1 TABLET DAILY
     Dates: start: 20101101, end: 20110624

REACTIONS (1)
  - MUSCLE FATIGUE [None]
